FAERS Safety Report 5294537-3 (Version None)
Quarter: 2007Q2

REPORT INFORMATION
  Report Type: 
  Country: None (occurrence: None)
  Receive Date: 20070412
  Receipt Date: 20070403
  Transmission Date: 20071010
  Serious: Yes (Death)
  Sender: FDA-Public Use
  Company Number: RU-JNJFOC-20070400925

PATIENT
  Age: 80 Year
  Sex: Male

DRUGS (8)
  1. LEVOFLOXACIN [Suspect]
     Indication: NOSOCOMIAL INFECTION
     Route: 042
  2. SULFACOMBINUM [Concomitant]
     Route: 030
  3. VEROSPIRON [Concomitant]
     Route: 065
  4. MAGNESIUM ASPARTATE [Concomitant]
     Route: 065
  5. POTASSIUM ASPARTATE [Concomitant]
     Route: 065
  6. RANITIDINE [Concomitant]
     Route: 065
  7. GLUCOSE [Concomitant]
     Route: 065
  8. K CL TAB [Concomitant]
     Route: 065

REACTIONS (1)
  - CEREBROVASCULAR ACCIDENT [None]
